FAERS Safety Report 5017364-0 (Version None)
Quarter: 2006Q2

REPORT INFORMATION
  Report Type: 
  Country: None (occurrence: None)
  Receive Date: 20060414
  Receipt Date: 20060301
  Transmission Date: 20061013
  Serious: No
  Sender: FDA-Public Use
  Company Number: 2006SP001020

PATIENT
  Age: 64 Year
  Sex: Female
  Weight: 49.4421 kg

DRUGS (6)
  1. LUNESTA [Suspect]
     Indication: INSOMNIA
     Dosage: 2 MG; HS; ORAL; SEE IMAGE
     Route: 048
     Dates: start: 20060101, end: 20060201
  2. LUNESTA [Suspect]
     Indication: INSOMNIA
     Dosage: 2 MG; HS; ORAL; SEE IMAGE
     Route: 048
     Dates: start: 20060302
  3. HORMONES AND RELATED AGENTS [Concomitant]
  4. ASPIRIN [Concomitant]
  5. VITAMINS [Concomitant]
  6. AMBIEN [Concomitant]

REACTIONS (5)
  - DRY MOUTH [None]
  - DYSGEUSIA [None]
  - FEELING ABNORMAL [None]
  - MIDDLE INSOMNIA [None]
  - THINKING ABNORMAL [None]
